FAERS Safety Report 6663064-0 (Version None)
Quarter: 2010Q1

REPORT INFORMATION
  Report Type: 
  Country: None (occurrence: None)
  Receive Date: 20100329
  Receipt Date: 20090528
  Transmission Date: 20100710
  Serious: Yes (Life-Threatening, Hospitalization)
  Sender: FDA-Public Use
  Company Number: 2009EN000173

PATIENT
  Age: 31 Month
  Sex: Male

DRUGS (2)
  1. ONCASPAR [Suspect]
     Indication: ACUTE LYMPHOCYTIC LEUKAEMIA
     Dosage: ; IM
     Route: 030
     Dates: start: 20090518, end: 20090518
  2. VINCRISTINE [Concomitant]

REACTIONS (6)
  - ANAPHYLACTIC REACTION [None]
  - COUGH [None]
  - LIP SWELLING [None]
  - SWELLING [None]
  - URTICARIA [None]
  - WHEEZING [None]
